FAERS Safety Report 8816270 (Version 1)
Quarter: 2012Q4

REPORT INFORMATION
  Report Type: Spontaneous
  Country: US (occurrence: None)
  Receive Date: 20120928
  Receipt Date: 20120928
  Transmission Date: 20130627
  Serious: Yes (Other)
  Sender: FDA-Public Use
  Company Number: None

PATIENT
  Sex: Female
  Weight: 61.69 kg

DRUGS (2)
  1. LEVOTHYROXINE [Suspect]
     Dosage: 0.05 mg 1 tablet per day by mouth
     Route: 048
  2. LEVOTHYROXINE [Suspect]

REACTIONS (3)
  - Gingival swelling [None]
  - Swelling face [None]
  - Mass [None]
